FAERS Safety Report 7347798-0 (Version None)
Quarter: 2011Q1

REPORT INFORMATION
  Report Type: 
  Country: None (occurrence: None)
  Receive Date: 20110302
  Receipt Date: 20110216
  Transmission Date: 20110831
  Serious: Yes (Death)
  Sender: FDA-Public Use
  Company Number: AE 2011-062

PATIENT
  Age: 60 Year
  Sex: Male

DRUGS (9)
  1. NEURONTIN [Concomitant]
  2. REGLAN [Concomitant]
  3. COLACE [Concomitant]
  4. CYMBALTA [Concomitant]
  5. FAZACLO ODT [Suspect]
     Indication: SCHIZOAFFECTIVE DISORDER
     Dosage: 500 MG DAILY PO
     Route: 048
     Dates: start: 20050615, end: 20101222
  6. VITAMIN D [Concomitant]
  7. KLONOPIN [Concomitant]
  8. ROVERUM [Concomitant]
  9. CALCIUM CARBONATE [Concomitant]

REACTIONS (1)
  - DEATH [None]
